FAERS Safety Report 4860911-X (Version None)
Quarter: 2005Q4

REPORT INFORMATION
  Report Type: 
  Country: None (occurrence: None)
  Receive Date: 20051216
  Receipt Date: 20051206
  Transmission Date: 20060501
  Serious: Yes (Hospitalization)
  Sender: FDA-Public Use
  Company Number: 2005AL004819

PATIENT
  Age: 80 Year
  Sex: Female

DRUGS (4)
  1. SERAX [Suspect]
     Dosage: 10MG;QD; PO
     Route: 048
  2. BROMAZEPAM ({NULL}) [Suspect]
     Dosage: 3 MG;QD; PO
     Route: 048
  3. DI-ANTALVIC ({NULL}) [Suspect]
     Dosage: 6 UNK; QD; PO
     Route: 048
  4. TOPALGIC ({NULL}) [Suspect]
     Dosage: 300 MG;QD; PO
     Route: 048

REACTIONS (3)
  - BACK PAIN [None]
  - DRUG INTERACTION [None]
  - FALL [None]
